FAERS Safety Report 9403768 (Version 1)
Quarter: 2013Q3

REPORT INFORMATION
  Report Type: Spontaneous
  Country: FR (occurrence: None)
  Receive Date: 20130712
  Receipt Date: 20130712
  Transmission Date: 20140515
  Serious: Yes (Hospitalization)
  Sender: FDA-Public Use
  Company Number: AXC-2013-000306

PATIENT
  Sex: Male

DRUGS (1)
  1. PYLERA [Suspect]
     Indication: PRODUCT USED FOR UNKNOWN INDICATION
     Dates: start: 20130601, end: 201306

REACTIONS (4)
  - Liver disorder [None]
  - Hepatocellular injury [None]
  - Cholestasis [None]
  - Pyrexia [None]
